FAERS Safety Report 8696439 (Version 2)
Quarter: 2012Q4

REPORT INFORMATION
  Report Type: 
  Country: LB (occurrence: LB)
  Receive Date: 20120801
  Receipt Date: 20121213
  Transmission Date: 20130627
  Serious: No
  Sender: FDA-Public Use
  Company Number: PHHY2012LB065676

PATIENT
  Sex: Male

DRUGS (7)
  1. TASIGNA [Suspect]
     Indication: CHRONIC MYELOID LEUKAEMIA
     Dosage: 800 mg per day
     Route: 048
     Dates: start: 20120501, end: 20121126
  2. TENORMIN [Concomitant]
     Dosage: UNK
     Route: 048
     Dates: start: 2005
  3. GLUCOPHAGE [Concomitant]
     Indication: DIABETES MELLITUS
     Dosage: 1 DF, Q12H
     Route: 048
     Dates: start: 2008
  4. VASCOR [Concomitant]
     Dosage: 1 DF, QD
     Route: 048
     Dates: start: 2005
  5. AMARYL [Concomitant]
     Dosage: 1 DF, QD
     Route: 048
     Dates: start: 2008
  6. ASPIRIN [Concomitant]
     Dosage: 1 DF, QD
     Route: 048
     Dates: start: 2005
  7. CARDULAR [Concomitant]
     Dosage: 1 DF, QD
     Route: 048
     Dates: start: 2005

REACTIONS (2)
  - Abscess [Recovering/Resolving]
  - Hyperglycaemia [Not Recovered/Not Resolved]
